FAERS Safety Report 8651223 (Version 3)
Quarter: 2012Q4

REPORT INFORMATION
  Report Type: 
  Country: JP (occurrence: JP)
  Receive Date: 20120705
  Receipt Date: 20120829
  Transmission Date: 20130627
  Serious: No
  Sender: FDA-Public Use
  Company Number: JP-B.I. PHARMACEUTICALS,INC./RIDGEFIELD-2012-BP-14591NB

PATIENT
  Age: 86 Year
  Sex: Female

DRUGS (4)
  1. PRAZAXA [Suspect]
     Indication: ATRIAL FIBRILLATION
     Dosage: 220 mg
     Route: 048
     Dates: start: 201104, end: 20120622
  2. LUPRAC [Suspect]
     Route: 065
  3. ALDACTONE A [Suspect]
     Route: 065
  4. MAINTATE [Concomitant]
     Route: 065

REACTIONS (3)
  - Thrombocytopenia [Recovered/Resolved]
  - Speech disorder [Recovered/Resolved]
  - Abdominal discomfort [Recovered/Resolved]
